FAERS Safety Report 6771272-3 (Version None)
Quarter: 2010Q2

REPORT INFORMATION
  Report Type: 
  Country: None (occurrence: None)
  Receive Date: 20100616
  Receipt Date: 20100604
  Transmission Date: 20101027
  Serious: Yes (Other)
  Sender: FDA-Public Use
  Company Number: PHHY2010FR37164

PATIENT
  Sex: Female

DRUGS (1)
  1. EXJADE [Suspect]
     Indication: IRON OVERLOAD
     Dosage: 1000 MG, DAILY
     Dates: end: 20100603

REACTIONS (6)
  - DIZZINESS [None]
  - FALL [None]
  - HYPOPHAGIA [None]
  - JOINT SPRAIN [None]
  - NAUSEA [None]
  - PYREXIA [None]
